FAERS Safety Report 7738308-4 (Version None)
Quarter: 2011Q3

REPORT INFORMATION
  Report Type: 
  Country: None (occurrence: None)
  Receive Date: 20110908
  Receipt Date: 20110906
  Transmission Date: 20111222
  Serious: Yes (Life-Threatening, Hospitalization)
  Sender: FDA-Public Use
  Company Number: AU-B.I. PHARMACEUTICALS,INC./RIDGEFIELD-2011-AU-01013AU

PATIENT
  Sex: Male
  Weight: 67 kg

DRUGS (8)
  1. PANTOPRAZOLE [Concomitant]
     Dosage: 40 MG
     Dates: start: 20110314
  2. ASPIRIN [Suspect]
     Dates: start: 20110824
  3. CRESTOR [Concomitant]
     Dosage: 20 MG
     Dates: start: 20100731
  4. PRADAXA [Suspect]
     Indication: ATRIAL FIBRILLATION
     Dosage: 220 MG
     Dates: start: 20110722, end: 20110820
  5. ZYLOPRIM [Concomitant]
     Dosage: 100 MG
     Dates: start: 20100731
  6. LASIX [Concomitant]
     Dosage: 40 MG
     Dates: start: 20100731
  7. AVAPRO [Concomitant]
     Dosage: 75 MG
     Dates: start: 20100731
  8. BICOR [Concomitant]
     Dosage: 5 MG
     Dates: start: 20100731

REACTIONS (2)
  - RECTAL HAEMORRHAGE [None]
  - CEREBROVASCULAR ACCIDENT [None]
